FAERS Safety Report 21208752 (Version 4)
Quarter: 2022Q3

REPORT INFORMATION
  Report Type: Report from Study
  Country: NL (occurrence: NL)
  Receive Date: 20220812
  Receipt Date: 20220913
  Transmission Date: 20221027
  Serious: Yes (Life-Threatening, Hospitalization)
  Sender: FDA-Public Use
  Company Number: NL-NOVARTISPH-NVSC2022NL180477

PATIENT
  Age: 66 Year
  Sex: Female

DRUGS (5)
  1. CAPMATINIB [Suspect]
     Active Substance: CAPMATINIB
     Indication: Non-small cell lung cancer
     Dosage: UNK
     Route: 065
     Dates: start: 20220715
  2. CAPMATINIB [Suspect]
     Active Substance: CAPMATINIB
     Dosage: 300 MG, 2DD
     Route: 048
     Dates: start: 20220803
  3. APIXABAN [Concomitant]
     Active Substance: APIXABAN
     Indication: Product used for unknown indication
     Dosage: 5 MG, (2 DD)
     Route: 065
     Dates: start: 202204, end: 20220808
  4. APIXABAN [Concomitant]
     Active Substance: APIXABAN
     Dosage: 5 MG, (2 DD)
     Route: 065
     Dates: start: 20220808
  5. CODEINE [Concomitant]
     Active Substance: CODEINE
     Indication: Product used for unknown indication
     Dosage: 10 MG (1 DD)
     Route: 065

REACTIONS (1)
  - Pyrexia [Recovered/Resolved]

NARRATIVE: CASE EVENT DATE: 20220804
